FAERS Safety Report 6531999-5 (Version None)
Quarter: 2009Q4

REPORT INFORMATION
  Report Type: 
  Country: None (occurrence: None)
  Receive Date: 20091223
  Receipt Date: 20090216
  Transmission Date: 20100525
  Serious: Yes (Hospitalization, Disabling, Other)
  Sender: FDA-Public Use
  Company Number: 2009161676

PATIENT
  Age: 74 Year
  Sex: Female

DRUGS (9)
  1. ATENOLOL [Suspect]
     Indication: HYPERTENSION
     Dosage: 50 MG, 2X/DAY, ORAL
     Route: 048
     Dates: start: 19940101
  2. FOSAMAX [Concomitant]
  3. NORVASC (AMLDOIPINE BESILATE) [Concomitant]
  4. MONTELUKAST SODIUM [Concomitant]
  5. ALLEGRA [Concomitant]
  6. ZOCOR [Concomitant]
  7. ZOLOFT [Concomitant]
  8. CALCIUM (CALCIUM) [Concomitant]
  9. TAGAMET DUAL ACTION (CIMETIDINE, SODIUM ALGINATE) [Concomitant]

REACTIONS (4)
  - CATARACT [None]
  - CEREBROVASCULAR ACCIDENT [None]
  - HEARING IMPAIRED [None]
  - OEDEMA PERIPHERAL [None]
